FAERS Safety Report 4845596-0 (Version None)
Quarter: 2005Q4

REPORT INFORMATION
  Report Type: 
  Country: None (occurrence: None)
  Receive Date: 20051205
  Receipt Date: 20051102
  Transmission Date: 20060501
  Serious: Yes (Hospitalization)
  Sender: FDA-Public Use
  Company Number: NZ-MERCK-0511NZL00008

PATIENT
  Age: 58 Year
  Sex: Female

DRUGS (6)
  1. ZOCOR [Suspect]
     Indication: BLOOD CHOLESTEROL
     Route: 048
     Dates: end: 20051001
  2. INSULIN [Concomitant]
     Indication: DIABETES MELLITUS
     Route: 065
  3. METFORMIN [Concomitant]
     Route: 065
  4. ASPIRIN [Concomitant]
     Route: 065
  5. METOPROLOL TARTRATE [Concomitant]
     Route: 065
  6. CILAZAPRIL [Concomitant]
     Route: 065

REACTIONS (7)
  - ASTHENIA [None]
  - CARDIAC DISORDER [None]
  - GASTROOESOPHAGEAL REFLUX DISEASE [None]
  - JOINT STIFFNESS [None]
  - PAIN [None]
  - PAIN IN EXTREMITY [None]
  - SHOULDER PAIN [None]
